FAERS Safety Report 12139354 (Version 2)
Quarter: 2016Q1

REPORT INFORMATION
  Report Type: Spontaneous
  Country: CA (occurrence: CA)
  Receive Date: 20160303
  Receipt Date: 20160324
  Transmission Date: 20160526
  Serious: Yes (Other)
  Sender: FDA-Public Use
  Company Number: CA-ROCHE-1718644

PATIENT
  Sex: Female

DRUGS (4)
  1. AVASTIN [Suspect]
     Active Substance: BEVACIZUMAB
     Indication: DIABETIC RETINAL OEDEMA
     Dosage: BOTH EYES EVERY 2 MONTHS
     Route: 050
     Dates: start: 2013, end: 2014
  2. HUMALOG [Concomitant]
     Active Substance: INSULIN LISPRO
     Indication: DIABETES MELLITUS
  3. LUCENTIS [Suspect]
     Active Substance: RANIBIZUMAB
     Indication: DIABETIC RETINAL OEDEMA
     Dosage: BOTH EYES EVERY 3 MONTHS
     Route: 065
     Dates: start: 201412, end: 2015
  4. AVASTIN [Suspect]
     Active Substance: BEVACIZUMAB
     Dosage: BOTH EYES EVERY 2 MONTHS
     Route: 042
     Dates: start: 201511, end: 20160225

REACTIONS (6)
  - Eye discharge [Recovered/Resolved]
  - Diabetic retinal oedema [Not Recovered/Not Resolved]
  - Nausea [Recovered/Resolved]
  - Eye irritation [Not Recovered/Not Resolved]
  - Eye pruritus [Not Recovered/Not Resolved]
  - Eye haemorrhage [Not Recovered/Not Resolved]
